FAERS Safety Report 9012759 (Version 1)
Quarter: 2013Q1

REPORT INFORMATION
  Report Type: Report from Study
  Country: MX (occurrence: MX)
  Receive Date: 20130114
  Receipt Date: 20130114
  Transmission Date: 20140127
  Serious: Yes (Other)
  Sender: FDA-Public Use
  Company Number: MX-ROCHE-1179135

PATIENT
  Sex: Male

DRUGS (1)
  1. CAPECITABINE [Suspect]
     Indication: COLORECTAL CANCER
     Dosage: 3-0-3
     Route: 048
     Dates: start: 201202

REACTIONS (7)
  - Decreased appetite [Not Recovered/Not Resolved]
  - Vomiting [Not Recovered/Not Resolved]
  - Nausea [Not Recovered/Not Resolved]
  - Diarrhoea [Not Recovered/Not Resolved]
  - Dysuria [Not Recovered/Not Resolved]
  - Dysuria [Not Recovered/Not Resolved]
  - Haematochezia [Not Recovered/Not Resolved]
